FAERS Safety Report 6535077-0 (Version None)
Quarter: 2010Q1

REPORT INFORMATION
  Report Type: 
  Country: None (occurrence: None)
  Receive Date: 20100113
  Receipt Date: 20100108
  Transmission Date: 20100710
  Serious: Yes (Hospitalization, Other)
  Sender: FDA-Public Use
  Company Number: US-ASTRAZENECA-2009UW04221

PATIENT
  Age: 18715 Day
  Sex: Male
  Weight: 176.9 kg

DRUGS (23)
  1. SEROQUEL [Suspect]
     Indication: ABNORMAL BEHAVIOUR
     Dosage: 25 MG TO 300 MG
     Route: 048
     Dates: start: 20000701, end: 20080801
  2. SEROQUEL [Suspect]
     Indication: MENTAL DISORDER
     Dosage: 25 MG TO 300 MG
     Route: 048
     Dates: start: 20000701, end: 20080801
  3. SEROQUEL [Suspect]
     Indication: DEPRESSION
     Dosage: 25 MG TO 300 MG
     Route: 048
     Dates: start: 20000701, end: 20080801
  4. SEROQUEL [Suspect]
     Indication: ANXIETY
     Dosage: 25 MG TO 300 MG
     Route: 048
     Dates: start: 20000701, end: 20080801
  5. SEROQUEL [Suspect]
     Route: 048
     Dates: start: 20060926
  6. SEROQUEL [Suspect]
     Route: 048
     Dates: start: 20060926
  7. SEROQUEL [Suspect]
     Route: 048
     Dates: start: 20060926
  8. SEROQUEL [Suspect]
     Route: 048
     Dates: start: 20060926
  9. ABILIFY [Concomitant]
     Dates: start: 20010901, end: 20011201
  10. RISPERDAL [Concomitant]
     Dates: start: 20051101
  11. PROZAC [Concomitant]
     Dates: start: 20020101, end: 20020301
  12. CLONAZEPAM [Concomitant]
     Dates: start: 20080401
  13. ALPRAZOLAM [Concomitant]
     Dates: start: 20050801, end: 20080501
  14. DEPAKOTE [Concomitant]
     Dates: start: 20050801, end: 20071101
  15. DEPAKOTE [Concomitant]
     Dates: start: 20080811
  16. EFFEXOR [Concomitant]
     Dates: start: 20050801, end: 20051001
  17. LYRICA [Concomitant]
     Dates: start: 20080811
  18. BACLOFEN [Concomitant]
     Dates: start: 20081108
  19. TOPAMAX [Concomitant]
     Dates: start: 20060926
  20. CYMBALTA [Concomitant]
     Dates: start: 20081108
  21. AMBIEN [Concomitant]
     Dates: start: 20081108
  22. CYCLOBENZAPRINE [Concomitant]
     Dates: start: 20060926
  23. GABAPENTIN [Concomitant]
     Dates: start: 20060926

REACTIONS (18)
  - ACUTE RESPIRATORY FAILURE [None]
  - CARDIOMYOPATHY [None]
  - CONVULSION [None]
  - DIABETIC COMA [None]
  - DIABETIC NEUROPATHY [None]
  - HYPERGLYCAEMIA [None]
  - HYPOGLYCAEMIA [None]
  - LYMPHOEDEMA [None]
  - MENTAL STATUS CHANGES [None]
  - NAUSEA [None]
  - NEUROPATHY PERIPHERAL [None]
  - OBESITY [None]
  - PAIN [None]
  - RHABDOMYOLYSIS [None]
  - SKIN CANDIDA [None]
  - SLEEP APNOEA SYNDROME [None]
  - TYPE 2 DIABETES MELLITUS [None]
  - VOMITING [None]
